FAERS Safety Report 14369706 (Version 1)
Quarter: 2018Q1

REPORT INFORMATION
  Report Type: Report from Study
  Country: KR (occurrence: KR)
  Receive Date: 20180110
  Receipt Date: 20180110
  Transmission Date: 20180509
  Serious: Yes (Other)
  Sender: FDA-Public Use
  Company Number: KR-ROCHE-2049774

PATIENT
  Age: 38 Year
  Sex: Male

DRUGS (3)
  1. BEVACIZUMAB. [Suspect]
     Active Substance: BEVACIZUMAB
     Indication: CORNEAL NEOVASCULARISATION
     Dosage: 2.5 MG/0.1 ML; APPROXIMATELY 0.01 ML
     Route: 050
  2. VERTEPORFIN [Suspect]
     Active Substance: VERTEPORFIN
     Indication: CORNEAL NEOVASCULARISATION
     Dosage: DILUTED WITH 5% DEXTROSE IN WATER TO A VOLUME OF 30 ML, ADMINISTERED OVER 10 MIN
     Route: 042
  3. PROPARACAINE HYDROCHLORIDE. [Concomitant]
     Active Substance: PROPARACAINE HYDROCHLORIDE
     Route: 065

REACTIONS (1)
  - Corneal bleeding [Recovering/Resolving]
